FAERS Safety Report 8371361-6 (Version None)
Quarter: 2012Q2

REPORT INFORMATION
  Report Type: 
  Country: None (occurrence: None)
  Receive Date: 20120517
  Receipt Date: 20120509
  Transmission Date: 20120825
  Serious: Yes (Hospitalization)
  Sender: FDA-Public Use
  Company Number: DEP_00635_2012

PATIENT
  Sex: Male

DRUGS (4)
  1. HORIZANT [Concomitant]
  2. GRALISE [Suspect]
     Indication: OFF LABEL USE
     Dosage: (2400 MG QD ORAL)
     Route: 048
     Dates: start: 20120401, end: 20120401
  3. GRALISE [Suspect]
     Indication: NERVE INJURY
     Dosage: (2400 MG QD ORAL)
     Route: 048
     Dates: start: 20120401, end: 20120401
  4. GABAPENTIN [Concomitant]

REACTIONS (3)
  - BURNING SENSATION [None]
  - PRURITUS [None]
  - RASH GENERALISED [None]
